FAERS Safety Report 10655350 (Version 1)
Quarter: 2014Q4

REPORT INFORMATION
  Report Type: Spontaneous
  Country: US (occurrence: None)
  Receive Date: 20141215
  Receipt Date: 20141215
  Transmission Date: 20150529
  Serious: Yes (Life-Threatening)
  Sender: FDA-Public Use
  Company Number: None

PATIENT

DRUGS (3)
  1. LIPOZENE [Suspect]
     Active Substance: KONJAC MANNAN
  2. INVEGA SUSTENNA [Suspect]
     Active Substance: PALIPERIDONE PALMITATE
     Indication: SCHIZOPHRENIA
     Route: 030
  3. INVEGA SUSTENNA [Suspect]
     Active Substance: PALIPERIDONE PALMITATE
     Indication: WEIGHT CONTROL
     Route: 030

REACTIONS (3)
  - Ill-defined disorder [None]
  - Urinary incontinence [None]
  - Alcohol use [None]

NARRATIVE: CASE EVENT DATE: 20141214
